FAERS Safety Report 11192938 (Version 1)
Quarter: 2015Q2

REPORT INFORMATION
  Report Type: Spontaneous
  Country: US (occurrence: None)
  Receive Date: 20150603
  Receipt Date: 20150603
  Transmission Date: 20150821
  Serious: No
  Sender: FDA-Public Use
  Company Number: 2015TASUS000695

PATIENT
  Age: 33 Year
  Sex: Female

DRUGS (4)
  1. HETLIOZ [Suspect]
     Active Substance: TASIMELTEON
     Indication: CIRCADIAN RHYTHM SLEEP DISORDER
     Dates: start: 20150204
  2. LEVOTHYROXINE SODIUM. [Concomitant]
     Active Substance: LEVOTHYROXINE SODIUM
  3. TRIAMTERENE/HCTZ (HYDROCHLOROTHIAZIDE, TRIAMTERENE) [Concomitant]
  4. LIPOGEN (CHOLINE, INOSITOL, VITAMINS NOS) [Concomitant]

REACTIONS (1)
  - Somnolence [None]

NARRATIVE: CASE EVENT DATE: 20150205
